FAERS Safety Report 7492041-5 (Version None)
Quarter: 2011Q2

REPORT INFORMATION
  Report Type: 
  Country: None (occurrence: None)
  Receive Date: 20110518
  Receipt Date: 20110518
  Transmission Date: 20111010
  Serious: Yes (Hospitalization)
  Sender: FDA-Public Use
  Company Number: None

PATIENT
  Age: 37 Year
  Weight: 119.7496 kg

DRUGS (2)
  1. GABAPENTIN [Suspect]
     Indication: PAIN
     Dosage: 300MG THREE TIMES A DAY PO
     Route: 048
     Dates: start: 20110510, end: 20110511
  2. NEURONTIN [Concomitant]

REACTIONS (4)
  - SLUGGISHNESS [None]
  - PHOTOPHOBIA [None]
  - FALL [None]
  - LETHARGY [None]
